FAERS Safety Report 13877934 (Version 1)
Quarter: 2017Q3

REPORT INFORMATION
  Report Type: Report from Study
  Country: IL (occurrence: IL)
  Receive Date: 20170817
  Receipt Date: 20170817
  Transmission Date: 20171127
  Serious: Yes (Other)
  Sender: FDA-Public Use
  Company Number: IL-AMGEN-ISRSL2017117152

PATIENT
  Age: 88 Year
  Sex: Female

DRUGS (7)
  1. NORMITEN [Concomitant]
     Active Substance: ATENOLOL
  2. CALCIUM [Concomitant]
     Active Substance: CALCIUM
  3. PROLIA [Suspect]
     Active Substance: DENOSUMAB
     Indication: OSTEOPOROSIS
     Dosage: 60 MG, Q6MO
     Route: 065
     Dates: start: 201506
  4. LIPITOR [Concomitant]
     Active Substance: ATORVASTATIN CALCIUM
  5. MIRO [Concomitant]
  6. VITAMIN D [Concomitant]
     Active Substance: CHOLECALCIFEROL
  7. OMEPRADEX [Concomitant]
     Active Substance: OMEPRAZOLE

REACTIONS (10)
  - Atrial fibrillation [Unknown]
  - Pain in extremity [Unknown]
  - Migraine [Unknown]
  - Gastrooesophageal reflux disease [Unknown]
  - Nephrolithiasis [Unknown]
  - Tooth loss [Unknown]
  - Fibromyalgia [Unknown]
  - Tremor [Unknown]
  - Scoliosis [Unknown]
  - Dyslipidaemia [Unknown]

NARRATIVE: CASE EVENT DATE: 201701
